FAERS Safety Report 23982254 (Version 2)
Quarter: 2024Q3

REPORT INFORMATION
  Report Type: Report from Study
  Country: US (occurrence: US)
  Receive Date: 20240617
  Receipt Date: 20240925
  Transmission Date: 20241017
  Serious: No
  Sender: SANDOZ
  Company Number: US-SANDOZ-SDZ2024US057577

PATIENT
  Age: 46 Year
  Sex: Female

DRUGS (2)
  1. OMNITROPE [Suspect]
     Active Substance: SOMATROPIN
     Indication: Hypopituitarism
     Dosage: 0.2 MG 2 DOSE EVERY N/A N/A
     Route: 058
     Dates: start: 20240601
  2. OMNITROPE [Suspect]
     Active Substance: SOMATROPIN
     Indication: Hypopituitarism
     Dosage: 0.2 MG 2 DOSE EVERY N/A N/A
     Route: 058
     Dates: start: 20240601

REACTIONS (7)
  - Lymphoedema [Unknown]
  - Needle issue [Unknown]
  - Device leakage [Unknown]
  - Product storage error [Unknown]
  - Incorrect dose administered [Unknown]
  - Accidental exposure to product [Unknown]
  - Wrong technique in device usage process [Unknown]

NARRATIVE: CASE EVENT DATE: 20240601
